FAERS Safety Report 8997995 (Version 1)
Quarter: 2013Q1

REPORT INFORMATION
  Report Type: Report from Study
  Country: CA (occurrence: CA)
  Receive Date: 20130104
  Receipt Date: 20130104
  Transmission Date: 20140127
  Serious: Yes (Death)
  Sender: FDA-Public Use
  Company Number: CA-ROCHE-1176678

PATIENT
  Sex: Female

DRUGS (9)
  1. PEG-INTERFERON ALFA 2A [Suspect]
     Indication: HEPATITIS C
     Route: 065
  2. RIBAVIRIN [Suspect]
     Indication: HEPATITIS C
     Route: 065
  3. PREDNISONE [Concomitant]
  4. METOPROLOL [Concomitant]
  5. SODIUM BICARBONATE [Concomitant]
  6. CALCIUM CARBONATE [Concomitant]
  7. PANTOLOC [Concomitant]
  8. ADVAGRAF [Concomitant]
  9. AMLODIPINE [Concomitant]

REACTIONS (1)
  - Death [Fatal]
